FAERS Safety Report 6016500-7 (Version None)
Quarter: 2008Q4

REPORT INFORMATION
  Report Type: 
  Country: None (occurrence: None)
  Receive Date: 20081222
  Receipt Date: 20081211
  Transmission Date: 20090506
  Serious: Yes (Other)
  Sender: FDA-Public Use
  Company Number: CH-ELI_LILLY_AND_COMPANY-CH200812003049

PATIENT
  Age: 69 Year
  Sex: Female
  Weight: 84 kg

DRUGS (4)
  1. CYMBALTA [Suspect]
     Indication: DEPRESSION
     Dosage: 60 MG, DAILY (1/D)
     Route: 048
     Dates: start: 20080825, end: 20081013
  2. SEROQUEL [Concomitant]
     Indication: BIPOLAR DISORDER
     Dosage: 50 MG, DAILY (1/D)
     Route: 048
     Dates: start: 20061206
  3. DIAMICRON [Concomitant]
     Indication: TYPE 2 DIABETES MELLITUS
     Dosage: 80 MG, 2/D
     Route: 048
     Dates: start: 20031001
  4. GLUCOPHAGE [Concomitant]
     Indication: TYPE 2 DIABETES MELLITUS
     Dosage: 1000 MG, 2/D
     Route: 048
     Dates: start: 20030801

REACTIONS (2)
  - FOOD AVERSION [None]
  - LIVER INJURY [None]
